FAERS Safety Report 5231797-9 (Version None)
Quarter: 2007Q1

REPORT INFORMATION
  Report Type: 
  Country: None (occurrence: None)
  Receive Date: 20061201
  Receipt Date: 20060926
  Transmission Date: 20070707
  Serious: No
  Sender: FDA-Public Use
  Company Number: 2006PV022040

PATIENT
  Age: 62 Year
  Sex: Female
  Weight: 68.0396 kg

DRUGS (6)
  1. BYETTA [Suspect]
     Indication: DIABETES MELLITUS
     Dosage: SEE IMAGE
     Route: 058
     Dates: start: 20050101, end: 20050101
  2. LANTUS [Concomitant]
  3. GLYBURIDE [Concomitant]
  4. FISH OIL [Concomitant]
  5. GLUCOSAMINE [Concomitant]
  6. LECITHINIUM SOYA [Concomitant]

REACTIONS (4)
  - CONSTIPATION [None]
  - FLATULENCE [None]
  - VOMITING [None]
  - WEIGHT INCREASED [None]
